FAERS Safety Report 15824168 (Version 1)
Quarter: 2019Q1

REPORT INFORMATION
  Report Type: Spontaneous
  Country: US (occurrence: US)
  Receive Date: 20190114
  Receipt Date: 20190114
  Transmission Date: 20190417
  Serious: Yes (Other)
  Sender: FDA-Public Use
  Company Number: US-JNJFOC-20190106410

PATIENT

DRUGS (1)
  1. AVEENO CLEAR COMPLEXION DAILY CLEANSING [Suspect]
     Active Substance: SALICYLIC ACID
     Indication: PRODUCT USED FOR UNKNOWN INDICATION
     Route: 061
     Dates: start: 20190101

REACTIONS (5)
  - Ocular hyperaemia [Unknown]
  - Application site pruritus [Unknown]
  - Application site pain [Unknown]
  - Application site reaction [Unknown]
  - Application site swelling [Unknown]

NARRATIVE: CASE EVENT DATE: 20190101
